FAERS Safety Report 6295122-7 (Version None)
Quarter: 2009Q3

REPORT INFORMATION
  Report Type: 
  Country: None (occurrence: None)
  Receive Date: 20090803
  Receipt Date: 20090728
  Transmission Date: 20100115
  Serious: Yes (Death, Hospitalization, Other)
  Sender: FDA-Public Use
  Company Number: PHHY2009BR31352

PATIENT
  Sex: Female

DRUGS (3)
  1. FORASEQ [Suspect]
     Indication: ASTHMA
  2. ALDACTONE [Concomitant]
     Indication: ASCITES
     Dosage: 40 MG, UNK
  3. HIZAAR [Concomitant]
     Indication: HYPERTENSION
     Dosage: HALF TABLET DAILY

REACTIONS (15)
  - ABDOMINAL DISTENSION [None]
  - ASTHENIA [None]
  - CARDIAC DISORDER [None]
  - CARDIAC FAILURE [None]
  - CATHETERISATION CARDIAC [None]
  - CONDITION AGGRAVATED [None]
  - HEPATIC CIRRHOSIS [None]
  - HEPATIC NEOPLASM [None]
  - HEPATITIS C [None]
  - OEDEMA PERIPHERAL [None]
  - PNEUMONIA [None]
  - RENAL DISORDER [None]
  - RENAL FAILURE [None]
  - RESPIRATORY FAILURE [None]
  - SENILE DEMENTIA [None]
